FAERS Safety Report 7732427-4 (Version None)
Quarter: 2011Q3

REPORT INFORMATION
  Report Type: 
  Country: None (occurrence: None)
  Receive Date: 20110906
  Receipt Date: 20110901
  Transmission Date: 20111222
  Serious: Yes (Hospitalization, Other)
  Sender: FDA-Public Use
  Company Number: US-ABBOTT-11P-163-0732053-00

PATIENT
  Sex: Male
  Weight: 113.5 kg

DRUGS (2)
  1. HUMIRA [Suspect]
     Indication: ANKYLOSING SPONDYLITIS
     Dates: start: 20040101
  2. LISINOPRIL [Concomitant]
     Indication: HYPERTENSION

REACTIONS (10)
  - JOINT SWELLING [None]
  - INAPPROPRIATE SCHEDULE OF DRUG ADMINISTRATION [None]
  - JOINT RANGE OF MOTION DECREASED [None]
  - PAIN IN EXTREMITY [None]
  - ARTHRALGIA [None]
  - DEVICE BREAKAGE [None]
  - OSTEOARTHRITIS [None]
  - GLUCOSE TOLERANCE IMPAIRED [None]
  - JOINT DISLOCATION [None]
  - JOINT STIFFNESS [None]
